FAERS Safety Report 7800400-3 (Version None)
Quarter: 2011Q4

REPORT INFORMATION
  Report Type: 
  Country: None (occurrence: None)
  Receive Date: 20111006
  Receipt Date: 20110929
  Transmission Date: 20120403
  Serious: Yes (Other)
  Sender: FDA-Public Use
  Company Number: US-JNJFOC-20111000002

PATIENT
  Sex: Female
  Weight: 116.12 kg

DRUGS (2)
  1. ORTHO EVRA [Suspect]
     Indication: MENSTRUATION IRREGULAR
     Route: 062
     Dates: start: 20080101, end: 20110601
  2. ORTHO EVRA [Suspect]
     Indication: CONTRACEPTION
     Route: 062
     Dates: start: 20080101, end: 20110601

REACTIONS (2)
  - OVARIAN CYST [None]
  - OFF LABEL USE [None]
